FAERS Safety Report 21234119 (Version 3)
Quarter: 2022Q4

REPORT INFORMATION
  Report Type: Spontaneous
  Country: BR (occurrence: None)
  Receive Date: 20220819
  Receipt Date: 20221209
  Transmission Date: 20230113
  Serious: Yes (Hospitalization, Other)
  Sender: FDA-Public Use
  Company Number: 2022A288560

PATIENT
  Age: 88 Year
  Sex: Female

DRUGS (5)
  1. SYMBICORT [Suspect]
     Active Substance: BUDESONIDE\FORMOTEROL FUMARATE DIHYDRATE
     Indication: Sinusitis
     Dosage: 12/400MCG, 320/9 MCG
     Route: 055
     Dates: start: 20220731
  2. SYMBICORT [Suspect]
     Active Substance: BUDESONIDE\FORMOTEROL FUMARATE DIHYDRATE
     Indication: Bronchitis
     Dosage: 12/400MCG, 320/9 MCG
     Route: 055
     Dates: start: 20220731
  3. CRESTOR [Suspect]
     Active Substance: ROSUVASTATIN CALCIUM
     Route: 048
  4. PROSTAT [Concomitant]
     Indication: Blood pressure measurement
  5. CONCARD [Concomitant]
     Indication: Blood pressure measurement

REACTIONS (8)
  - Malaise [Recovered/Resolved]
  - Seizure [Unknown]
  - Paralysis [Recovered/Resolved]
  - Aphasia [Unknown]
  - Toxicity to various agents [Recovered/Resolved]
  - Asthenia [Recovered/Resolved]
  - Nausea [Recovered/Resolved]
  - Off label use [Recovered/Resolved]

NARRATIVE: CASE EVENT DATE: 20220731
